FAERS Safety Report 17250060 (Version 1)
Quarter: 2020Q1

REPORT INFORMATION
  Report Type: Spontaneous
  Country: JP (occurrence: JP)
  Receive Date: 20200109
  Receipt Date: 20200109
  Transmission Date: 20200409
  Serious: Yes (Other)
  Sender: FDA-Public Use
  Company Number: JP-MTPC-MTPC2019-0082683

PATIENT

DRUGS (2)
  1. NOVASTAN [Suspect]
     Active Substance: ARGATROBAN
     Dosage: 60 MILLIGRAM, QD
     Route: 041
  2. RADICUT INJ. 30MG [Suspect]
     Active Substance: EDARAVONE
     Route: 051

REACTIONS (2)
  - Incorrect dose administered [Unknown]
  - Cerebral infarction [Unknown]
